FAERS Safety Report 12693572 (Version 1)
Quarter: 2016Q3

REPORT INFORMATION
  Report Type: Spontaneous
  Country: DE (occurrence: DE)
  Receive Date: 20160829
  Receipt Date: 20160829
  Transmission Date: 20161109
  Serious: Yes (Other)
  Sender: FDA-Public Use
  Company Number: DE-PFIZER INC-2016403819

PATIENT
  Age: 36 Year
  Sex: Female
  Weight: 56 kg

DRUGS (6)
  1. DULOXETIN [Suspect]
     Active Substance: DULOXETINE
     Indication: NEURALGIA
     Dosage: 30 MG, 2X/DAY
     Route: 048
     Dates: start: 20151013, end: 20151020
  2. LYRICA [Suspect]
     Active Substance: PREGABALIN
     Indication: NEURALGIA
     Dosage: 300 MG, 2X/DAY
     Route: 048
     Dates: start: 20150824
  3. LYRICA [Suspect]
     Active Substance: PREGABALIN
     Dosage: 300 MG, 1X/DAY
     Route: 048
  4. LYRICA [Suspect]
     Active Substance: PREGABALIN
     Dosage: 300 MG, 2X/DAY
     Route: 048
     Dates: start: 20160426, end: 20160520
  5. OMEPRAZOL [Concomitant]
     Active Substance: OMEPRAZOLE
     Indication: GASTRITIS
     Dosage: 20 MG, DAILY
     Route: 048
     Dates: start: 20150824, end: 20160520
  6. FEMIBION 1 [Concomitant]
     Indication: PROPHYLAXIS OF NEURAL TUBE DEFECT
     Dosage: 5 MG, DAILY
     Route: 048
     Dates: start: 20151013, end: 20160520

REACTIONS (1)
  - Gestational diabetes [Unknown]
